FAERS Safety Report 7113464-X (Version None)
Quarter: 2010Q4

REPORT INFORMATION
  Report Type: 
  Country: None (occurrence: None)
  Receive Date: 20101119
  Receipt Date: 20100629
  Transmission Date: 20110411
  Serious: Yes (Other)
  Sender: FDA-Public Use
  Company Number: US-ASTRAZENECA-2010SE05366

PATIENT
  Age: 23522 Day
  Sex: Female
  Weight: 64.4 kg

DRUGS (3)
  1. CRESTOR [Suspect]
     Indication: LOW DENSITY LIPOPROTEIN INCREASED
     Route: 048
     Dates: start: 20091001, end: 20091105
  2. PAMELOR [Interacting]
     Indication: DEPRESSION
     Route: 048
  3. ARMOUR THYROID [Concomitant]
     Indication: HYPOTHYROIDISM
     Route: 048

REACTIONS (6)
  - DEPRESSION [None]
  - DEPRESSION SUICIDAL [None]
  - DIZZINESS [None]
  - FATIGUE [None]
  - INHIBITORY DRUG INTERACTION [None]
  - SUICIDAL IDEATION [None]
